FAERS Safety Report 5796723-2 (Version None)
Quarter: 2008Q3

REPORT INFORMATION
  Report Type: 
  Country: None (occurrence: None)
  Receive Date: 20080701
  Receipt Date: 20080624
  Transmission Date: 20090109
  Serious: Yes (Hospitalization)
  Sender: FDA-Public Use
  Company Number: US-MERCK-0607USA04119

PATIENT
  Sex: Male

DRUGS (2)
  1. MEVACOR [Suspect]
     Route: 048
     Dates: start: 20051006, end: 20051118
  2. LUPRON [Concomitant]
     Route: 048

REACTIONS (8)
  - CHOKING [None]
  - CONFUSIONAL STATE [None]
  - DIPLOPIA [None]
  - EYE DISORDER [None]
  - MALAISE [None]
  - MEMORY IMPAIRMENT [None]
  - MYASTHENIA GRAVIS [None]
  - VISUAL IMPAIRMENT [None]
